FAERS Safety Report 11365409 (Version 1)
Quarter: 2015Q3

REPORT INFORMATION
  Report Type: Spontaneous
  Country: PT (occurrence: PT)
  Receive Date: 20150811
  Receipt Date: 20150811
  Transmission Date: 20151125
  Serious: Yes (Life-Threatening)
  Sender: FDA-Public Use
  Company Number: PHHY2015PT092011

PATIENT
  Age: 11 Month
  Sex: Female
  Weight: 10 kg

DRUGS (1)
  1. CEFTRIAXONE SODIUM SANDOZ [Suspect]
     Active Substance: CEFTRIAXONE SODIUM
     Indication: BACTERAEMIA
     Dosage: 800 MG, QD
     Route: 040
     Dates: start: 20150707, end: 20150713

REACTIONS (7)
  - Urticaria [Recovered/Resolved]
  - Cyanosis [Recovered/Resolved]
  - Anaphylactic reaction [Recovered/Resolved]
  - Hyperhidrosis [Recovered/Resolved]
  - Cough [Recovered/Resolved]
  - Hypertension [Recovered/Resolved]
  - Pallor [Recovered/Resolved]

NARRATIVE: CASE EVENT DATE: 20150713
